FAERS Safety Report 9850385 (Version 2)
Quarter: 2014Q1

REPORT INFORMATION
  Report Type: Spontaneous
  Country: DE (occurrence: DE)
  Receive Date: 20140128
  Receipt Date: 20140220
  Transmission Date: 20141002
  Serious: Yes (Other)
  Sender: FDA-Public Use
  Company Number: DE-BRISTOL-MYERS SQUIBB COMPANY-20085874

PATIENT
  Age: 35 Year
  Sex: Male

DRUGS (3)
  1. ELIQUIS [Suspect]
     Indication: ARRHYTHMIA
     Dosage: 5MG TABS
  2. AMIODARONE [Concomitant]
  3. BISOPROLOL [Concomitant]

REACTIONS (1)
  - Hypoglycaemia [Not Recovered/Not Resolved]
